FAERS Safety Report 7474560-0 (Version None)
Quarter: 2011Q2

REPORT INFORMATION
  Report Type: 
  Country: None (occurrence: None)
  Receive Date: 20110503
  Receipt Date: 20110425
  Transmission Date: 20111010
  Serious: Yes (Hospitalization)
  Sender: FDA-Public Use
  Company Number: 2011001973

PATIENT
  Age: 74 Year
  Sex: Male

DRUGS (2)
  1. HYPOGLYCEMIC AGENT [Concomitant]
  2. TARCEVA [Suspect]
     Indication: LUNG NEOPLASM MALIGNANT
     Dosage: 150 MG, QD, ORAL
     Route: 048
     Dates: start: 20110419

REACTIONS (1)
  - BLOOD GLUCOSE DECREASED [None]
